FAERS Safety Report 16036188 (Version 1)
Quarter: 2019Q1

REPORT INFORMATION
  Report Type: Spontaneous
  Country: US (occurrence: US)
  Receive Date: 20190305
  Receipt Date: 20190305
  Transmission Date: 20190418
  Serious: No
  Sender: FDA-Public Use
  Company Number: US-ALLERGAN-1811007US

PATIENT

DRUGS (1)
  1. ESTRACE [Suspect]
     Active Substance: ESTRADIOL
     Indication: MATERNAL EXPOSURE TIMING UNSPECIFIED
     Dosage: UNK, UNKNOWN
     Route: 063

REACTIONS (1)
  - Maternal exposure during breast feeding [Unknown]
